FAERS Safety Report 15121962 (Version 6)
Quarter: 2018Q4

REPORT INFORMATION
  Report Type: Spontaneous
  Country: FR (occurrence: FR)
  Receive Date: 20180709
  Receipt Date: 20181220
  Transmission Date: 20190204
  Serious: Yes (Death, Other)
  Sender: FDA-Public Use
  Company Number: FR-PFIZER INC-2018270191

PATIENT
  Age: 46 Year
  Sex: Male

DRUGS (2)
  1. IDARUBICIN HCL [Suspect]
     Active Substance: IDARUBICIN HYDROCHLORIDE
     Indication: CHEMOTHERAPY
     Dosage: HIGH DOSE
  2. CYTARABINE. [Suspect]
     Active Substance: CYTARABINE
     Indication: CHEMOTHERAPY
     Dosage: HIGH DOSE

REACTIONS (4)
  - Pneumonia [Fatal]
  - Subdural haemorrhage [Fatal]
  - Thrombocytopenia [Fatal]
  - Colitis [Fatal]
